FAERS Safety Report 12998680 (Version 1)
Quarter: 2016Q4

REPORT INFORMATION
  Report Type: Spontaneous
  Country: US (occurrence: US)
  Receive Date: 20161204
  Receipt Date: 20161204
  Transmission Date: 20170207
  Serious: No
  Sender: FDA-Public Use
  Company Number: None

PATIENT
  Age: 65 Year
  Sex: Female
  Weight: 95.4 kg

DRUGS (12)
  1. PANTOPRAZOLE SOD [Suspect]
     Active Substance: PANTOPRAZOLE SODIUM
     Indication: GASTROOESOPHAGEAL REFLUX DISEASE
     Dosage: ?          QUANTITY:1 TABLET(S);?
     Route: 048
     Dates: start: 20161018, end: 20161203
  2. OMEGA-3 ACIDS [Concomitant]
     Active Substance: OMEGA-3 FATTY ACIDS
  3. LISINOPRIL. [Concomitant]
     Active Substance: LISINOPRIL
  4. ZYFLAMEND [Concomitant]
  5. PARNATE [Concomitant]
     Active Substance: TRANYLCYPROMINE SULFATE
  6. PANTOPRAZOLE [Concomitant]
     Active Substance: PANTOPRAZOLE SODIUM
  7. ALEVE [Concomitant]
     Active Substance: NAPROXEN SODIUM
  8. CENTRUM WOMEN^S [Concomitant]
  9. CITRICAL [Concomitant]
     Active Substance: CALCIUM CITRATE
  10. LIOTHYRONINE [Concomitant]
     Active Substance: LIOTHYRONINE
  11. CLONAZAPAM [Concomitant]
     Active Substance: CLONAZEPAM
  12. TYLENOL ARTHRITIS PAIN [Concomitant]
     Active Substance: ACETAMINOPHEN

REACTIONS (5)
  - Product quality issue [None]
  - Product substitution issue [None]
  - Nausea [None]
  - Parosmia [None]
  - Gastrooesophageal reflux disease [None]

NARRATIVE: CASE EVENT DATE: 20161028
